FAERS Safety Report 13568512 (Version 1)
Quarter: 2017Q2

REPORT INFORMATION
  Report Type: Spontaneous
  Country: US (occurrence: US)
  Receive Date: 20170522
  Receipt Date: 20170522
  Transmission Date: 20170830
  Serious: No
  Sender: FDA-Public Use
  Company Number: None

PATIENT
  Age: 57 Year
  Sex: Female
  Weight: 83.54 kg

DRUGS (11)
  1. GABAPENTIN. [Concomitant]
     Active Substance: GABAPENTIN
  2. LANTUS [Concomitant]
     Active Substance: INSULIN GLARGINE
  3. LORATADINE. [Concomitant]
     Active Substance: LORATADINE
  4. ATORVASTATIN [Concomitant]
     Active Substance: ATORVASTATIN
  5. LISINOPRIL. [Concomitant]
     Active Substance: LISINOPRIL
  6. ALBUTEROL. [Concomitant]
     Active Substance: ALBUTEROL
  7. MONTELUKAST [Concomitant]
     Active Substance: MONTELUKAST SODIUM
  8. HCTZ [Concomitant]
     Active Substance: HYDROCHLOROTHIAZIDE
  9. VICTOZA [Suspect]
     Active Substance: LIRAGLUTIDE
     Indication: TYPE 2 DIABETES MELLITUS
     Dosage: 0.2 MG (1.2 MG TOTAL) ONCE DAILY SUBQ
     Route: 058
     Dates: start: 20170307, end: 20170516
  10. METFORMIN [Concomitant]
     Active Substance: METFORMIN HYDROCHLORIDE
  11. LEVOTHYROXINE. [Concomitant]
     Active Substance: LEVOTHYROXINE

REACTIONS (4)
  - No reaction on previous exposure to drug [None]
  - Refusal of treatment by patient [None]
  - Immediate post-injection reaction [None]
  - Bronchospasm [None]

NARRATIVE: CASE EVENT DATE: 20170307
